FAERS Safety Report 9770513 (Version 1)
Quarter: 2013Q4

REPORT INFORMATION
  Report Type: Spontaneous
  Country: US (occurrence: US)
  Receive Date: 20131218
  Receipt Date: 20131218
  Transmission Date: 20140711
  Serious: No
  Sender: FDA-Public Use
  Company Number: US-BIOGENIDEC-2013BI120484

PATIENT
  Sex: Female

DRUGS (11)
  1. TECFIDERA [Suspect]
     Indication: MULTIPLE SCLEROSIS
     Route: 048
     Dates: start: 20130821
  2. ACIPHEX [Concomitant]
  3. ALLERGY RELIEF [Concomitant]
  4. AMITRIPTYLINE [Concomitant]
  5. CRESTOR [Concomitant]
  6. GABAPENTIN [Concomitant]
  7. KRILL OIL [Concomitant]
  8. METFORMIN [Concomitant]
  9. MUCINEX [Concomitant]
  10. VITAMIN C [Concomitant]
  11. VITAMIN D [Concomitant]

REACTIONS (1)
  - Pain in extremity [Unknown]
